FAERS Safety Report 6592941-4 (Version None)
Quarter: 2010Q1

REPORT INFORMATION
  Report Type: 
  Country: None (occurrence: None)
  Receive Date: 20100222
  Receipt Date: 20100212
  Transmission Date: 20100710
  Serious: Yes (Hospitalization)
  Sender: FDA-Public Use
  Company Number: US-ELI_LILLY_AND_COMPANY-US201002004216

PATIENT
  Sex: Female

DRUGS (2)
  1. HUMALOG [Suspect]
     Indication: DIABETES MELLITUS
  2. LANTUS [Concomitant]
     Dosage: 40 U, UNK

REACTIONS (5)
  - BLOOD GLUCOSE INCREASED [None]
  - CONCUSSION [None]
  - CONFUSIONAL STATE [None]
  - FALL [None]
  - PAIN [None]
